FAERS Safety Report 8473690-4 (Version None)
Quarter: 2012Q2

REPORT INFORMATION
  Report Type: 
  Country: None (occurrence: None)
  Receive Date: 20120628
  Receipt Date: 20110909
  Transmission Date: 20120825
  Serious: Yes (Other)
  Sender: FDA-Public Use
  Company Number: US-MYLANLABS-2011S1018674

PATIENT
  Age: 42 Year
  Sex: Male

DRUGS (6)
  1. DEPAKOTE [Concomitant]
  2. BENZTROPINE MESYLATE [Concomitant]
  3. TRAZODONE HCL [Concomitant]
  4. CLONAZEPAM [Concomitant]
  5. ZYPREXA [Concomitant]
  6. CLOZAPINE [Suspect]
     Indication: SCHIZOAFFECTIVE DISORDER
     Route: 048
     Dates: end: 20110830

REACTIONS (1)
  - GRANULOCYTOPENIA [None]
